FAERS Safety Report 5494860-3 (Version None)
Quarter: 2007Q4

REPORT INFORMATION
  Report Type: 
  Country: None (occurrence: None)
  Receive Date: 20071022
  Receipt Date: 20071004
  Transmission Date: 20080405
  Serious: Yes (Hospitalization)
  Sender: FDA-Public Use
  Company Number: 2007BI021464

PATIENT
  Age: 42 Year
  Sex: Female

DRUGS (3)
  1. AVONEX [Suspect]
     Indication: MULTIPLE SCLEROSIS
     Dosage: 30 UG;QW;IM
     Route: 030
     Dates: start: 20040101
  2. STEROIDS [Concomitant]
  3. IBUDILAST [Concomitant]

REACTIONS (4)
  - DEHYDRATION [None]
  - HYPOKALAEMIA [None]
  - MALAISE [None]
  - URINE KETONE BODY PRESENT [None]
